FAERS Safety Report 20954897 (Version 2)
Quarter: 2022Q2

REPORT INFORMATION
  Report Type: Spontaneous
  Country: US (occurrence: None)
  Receive Date: 20220614
  Receipt Date: 20220614
  Transmission Date: 20220721
  Serious: No
  Sender: FDA-Public Use
  Company Number: US-MDD US Operations-MDD202109-001858

PATIENT
  Age: 75 Year
  Sex: Female
  Weight: 27 kg

DRUGS (6)
  1. APOKYN [Suspect]
     Active Substance: APOMORPHINE HYDROCHLORIDE
     Indication: Product used for unknown indication
     Dates: start: 20210806
  2. APOKYN [Suspect]
     Active Substance: APOMORPHINE HYDROCHLORIDE
     Indication: Parkinson^s disease
     Route: 058
     Dates: start: 20210408
  3. HYDROCHLOROTHIAZIDE [Concomitant]
     Active Substance: HYDROCHLOROTHIAZIDE
     Dosage: NOT PROVIDED
  4. CARBIDOPA AND LEVODOPA [Concomitant]
     Active Substance: CARBIDOPA\LEVODOPA
     Dosage: NOT PROVIDED
  5. AMANTADINE [Concomitant]
     Active Substance: AMANTADINE
     Dosage: NOT PROVIDED
  6. RASAGILINE [Concomitant]
     Active Substance: RASAGILINE
     Dosage: NOT PROVIDED

REACTIONS (3)
  - Nausea [Unknown]
  - Device defective [Unknown]
  - Device breakage [Unknown]

NARRATIVE: CASE EVENT DATE: 20210101
